FAERS Safety Report 14521680 (Version 7)
Quarter: 2018Q3

REPORT INFORMATION
  Report Type: Spontaneous
  Country: US (occurrence: US)
  Receive Date: 20180212
  Receipt Date: 20180925
  Transmission Date: 20181010
  Serious: Yes (Other)
  Sender: FDA-Public Use
  Company Number: US-PFIZER INC-2018052988

PATIENT
  Age: 70 Year
  Sex: Male

DRUGS (6)
  1. SUTENT [Suspect]
     Active Substance: SUNITINIB MALATE
     Dosage: 25 MG, DAILY (2 CAPSULES)
     Route: 048
     Dates: start: 2018
  2. METFORMIN HCL [Concomitant]
     Active Substance: METFORMIN HYDROCHLORIDE
     Dosage: UNK
  3. SUTENT [Suspect]
     Active Substance: SUNITINIB MALATE
     Indication: SOFT TISSUE SARCOMA
     Dosage: 25 MG, DAILY (2 CAPSULES)
     Route: 048
     Dates: start: 20180131, end: 20180615
  4. LISINOPRIL. [Concomitant]
     Active Substance: LISINOPRIL
     Dosage: UNK
  5. SIMVASTATIN. [Concomitant]
     Active Substance: SIMVASTATIN
     Dosage: UNK
  6. PIOGLITAZONE. [Concomitant]
     Active Substance: PIOGLITAZONE
     Dosage: 15 MG, UNK

REACTIONS (12)
  - Drug dose omission [Unknown]
  - Arthralgia [Unknown]
  - Fatigue [Unknown]
  - Abdominal pain [Unknown]
  - Dry skin [Not Recovered/Not Resolved]
  - Hypertension [Recovered/Resolved]
  - Psoriasis [Not Recovered/Not Resolved]
  - Type 2 diabetes mellitus [Unknown]
  - Peripheral swelling [Unknown]
  - Stomatitis [Unknown]
  - Vomiting [Unknown]
  - Rash [Not Recovered/Not Resolved]

NARRATIVE: CASE EVENT DATE: 20180204
